FAERS Safety Report 22064034 (Version 1)
Quarter: 2023Q1

REPORT INFORMATION
  Report Type: Spontaneous
  Country: JP (occurrence: JP)
  Receive Date: 20230306
  Receipt Date: 20230306
  Transmission Date: 20230417
  Serious: Yes (Hospitalization, Other)
  Sender: FDA-Public Use
  Company Number: JP-MLMSERVICE-20230222-4122523-1

PATIENT
  Age: 79 Year
  Sex: Female

DRUGS (3)
  1. SERTRALINE [Suspect]
     Active Substance: SERTRALINE HYDROCHLORIDE
     Indication: Antidepressant therapy
  2. VORTIOXETINE [Suspect]
     Active Substance: VORTIOXETINE
     Indication: Antidepressant therapy
  3. DULOXETINE [Suspect]
     Active Substance: DULOXETINE
     Indication: Antidepressant therapy

REACTIONS (4)
  - Condition aggravated [Recovering/Resolving]
  - Tremor [Recovering/Resolving]
  - Parkinsonism [Recovering/Resolving]
  - Agitation [Recovering/Resolving]
